FAERS Safety Report 7796990-X (Version None)
Quarter: 2011Q4

REPORT INFORMATION
  Report Type: 
  Country: None (occurrence: None)
  Receive Date: 20111005
  Receipt Date: 20111005
  Transmission Date: 20120403
  Serious: Yes (Other)
  Sender: FDA-Public Use
  Company Number: None

PATIENT
  Age: 26 Year
  Sex: Female
  Weight: 74.842 kg

DRUGS (1)
  1. CYMBALTA [Suspect]
     Indication: DEPRESSION
     Dosage: 60MG
     Route: 048
     Dates: start: 20110815, end: 20110920

REACTIONS (3)
  - ANGER [None]
  - ABNORMAL BEHAVIOUR [None]
  - SUICIDAL IDEATION [None]
